FAERS Safety Report 16431194 (Version 1)
Quarter: 2019Q2

REPORT INFORMATION
  Report Type: Spontaneous
  Country: GB (occurrence: GB)
  Receive Date: 20190614
  Receipt Date: 20190614
  Transmission Date: 20190711
  Serious: Yes (Death)
  Sender: FDA-Public Use
  Company Number: GB-DRREDDYS-GER/UKI/09/0001482

PATIENT
  Age: 79 Year
  Sex: Male
  Weight: 100 kg

DRUGS (8)
  1. DIGOXIN. [Concomitant]
     Active Substance: DIGOXIN
     Indication: ATRIAL FIBRILLATION
     Route: 048
     Dates: start: 1999
  2. PRAZOSIN. [Concomitant]
     Active Substance: PRAZOSIN
     Indication: BLOOD PRESSURE INCREASED
     Route: 048
  3. SULFASALAZINE. [Concomitant]
     Active Substance: SULFASALAZINE
     Indication: PRODUCT USED FOR UNKNOWN INDICATION
  4. WARFARIN [Concomitant]
     Active Substance: WARFARIN
     Indication: ATRIAL FIBRILLATION
     Dosage: VARIABLE DOSE
     Route: 048
  5. FLUOXETINE [Suspect]
     Active Substance: FLUOXETINE HYDROCHLORIDE
     Indication: DEPRESSION
     Route: 048
     Dates: start: 20060808
  6. METHOTREXATE. [Suspect]
     Active Substance: METHOTREXATE
     Indication: SERONEGATIVE ARTHRITIS
     Dates: start: 20000710
  7. CO-DYDRAMOL [Concomitant]
     Active Substance: ACETAMINOPHEN\DIHYDROCODEINE
     Indication: ARTHRITIS
     Dosage: UPTO 2 QDS
     Route: 048
     Dates: start: 1998
  8. FOLIC ACID. [Concomitant]
     Active Substance: FOLIC ACID
     Indication: PRODUCT USED FOR UNKNOWN INDICATION

REACTIONS (1)
  - Pneumonia [Fatal]
